FAERS Safety Report 5460999-1 (Version None)
Quarter: 2007Q3

REPORT INFORMATION
  Report Type: 
  Country: None (occurrence: None)
  Receive Date: 20070822
  Receipt Date: 20061202
  Transmission Date: 20080115
  Serious: Yes (Other)
  Sender: FDA-Public Use
  Company Number: 2006115419

PATIENT
  Age: 50 Year
  Sex: Male

DRUGS (4)
  1. NORVASC [Suspect]
     Indication: HYPERTENSION
     Dosage: 5 MG
     Dates: start: 20060916, end: 20060916
  2. HYDROCHLOROTHIAZIDE [Concomitant]
  3. PREVACID [Concomitant]
  4. BENAZEPRIL HCL [Concomitant]

REACTIONS (2)
  - NAUSEA [None]
  - PANCREATITIS [None]
